FAERS Safety Report 9717636 (Version 3)
Quarter: 2014Q2

REPORT INFORMATION
  Report Type: Spontaneous
  Country: US (occurrence: US)
  Receive Date: 20131127
  Receipt Date: 20140425
  Transmission Date: 20141212
  Serious: Yes (Other)
  Sender: FDA-Public Use
  Company Number: US-PFIZER INC-2013336632

PATIENT
  Age: 56 Year
  Sex: Female

DRUGS (2)
  1. XELJANZ [Suspect]
     Indication: RHEUMATOID ARTHRITIS
     Dosage: 5 MG, 2X/DAY
     Route: 048
     Dates: start: 201309
  2. XELJANZ [Suspect]
     Dosage: 5 MG, DAILY
     Route: 048
     Dates: start: 201310

REACTIONS (5)
  - Systemic lupus erythematosus [Unknown]
  - Joint swelling [Unknown]
  - Diarrhoea [Unknown]
  - Drug ineffective [Unknown]
  - Muscle strain [Unknown]
